FAERS Safety Report 15102910 (Version 1)
Quarter: 2018Q3

REPORT INFORMATION
  Report Type: Spontaneous
  Country: US (occurrence: US)
  Receive Date: 20180703
  Receipt Date: 20180703
  Transmission Date: 20181010
  Serious: No
  Sender: FDA-Public Use
  Company Number: US-SA-2018SA172857

PATIENT
  Sex: Female

DRUGS (2)
  1. DUPIXENT [Suspect]
     Active Substance: DUPILUMAB
     Indication: DERMATITIS ATOPIC
     Dosage: 2 DF, ONCE (LOADING DOSE)
     Route: 058
     Dates: start: 20180226, end: 20180226
  2. DUPIXENT [Suspect]
     Active Substance: DUPILUMAB
     Dosage: UNK (MAINTENANCE DOSE)
     Route: 058
     Dates: start: 20180313

REACTIONS (1)
  - Rash [Unknown]

NARRATIVE: CASE EVENT DATE: 20180515
